FAERS Safety Report 8520823 (Version 7)
Quarter: 2014Q1

REPORT INFORMATION
  Report Type: Spontaneous
  Country: US (occurrence: US)
  Receive Date: 20120419
  Receipt Date: 20140131
  Transmission Date: 20141002
  Serious: Yes (Disabling, Other)
  Sender: FDA-Public Use
  Company Number: US-ASTRAZENECA-2011SE41511

PATIENT
  Age: 52 Year
  Sex: Female

DRUGS (48)
  1. NEXIUM [Suspect]
     Indication: GASTROOESOPHAGEAL REFLUX DISEASE
     Dosage: TWO TIMES DAILY
     Route: 048
     Dates: start: 2001, end: 2003
  2. NEXIUM [Suspect]
     Indication: GASTROOESOPHAGEAL REFLUX DISEASE
     Route: 048
     Dates: start: 2002
  3. NEXIUM [Suspect]
     Indication: GASTROOESOPHAGEAL REFLUX DISEASE
     Route: 048
     Dates: start: 2003
  4. NEXIUM [Suspect]
     Indication: GASTROOESOPHAGEAL REFLUX DISEASE
     Route: 048
     Dates: start: 20070305
  5. NEXIUM [Suspect]
     Indication: GASTROOESOPHAGEAL REFLUX DISEASE
     Dosage: DAILY
     Route: 048
     Dates: start: 20081230
  6. NEXIUM [Suspect]
     Indication: GASTROOESOPHAGEAL REFLUX DISEASE
     Dosage: QD
     Route: 048
     Dates: start: 20090306
  7. NEXIUM [Suspect]
     Indication: GASTROOESOPHAGEAL REFLUX DISEASE
     Route: 048
     Dates: start: 20100428
  8. NEXIUM [Suspect]
     Indication: GASTROOESOPHAGEAL REFLUX DISEASE
     Route: 048
     Dates: start: 20121113
  9. PREVACID [Concomitant]
     Indication: GASTROOESOPHAGEAL REFLUX DISEASE
     Dates: start: 2001, end: 2003
  10. PROTONIX [Concomitant]
     Indication: GASTROOESOPHAGEAL REFLUX DISEASE
     Dates: start: 2001, end: 2003
  11. TAGAMET [Concomitant]
  12. ZANTAC [Concomitant]
  13. TUMS [Concomitant]
     Indication: OSTEOPENIA
     Dosage: AS NEEDED
     Dates: start: 1996
  14. ROLAIDS [Concomitant]
  15. VITAMIN D [Concomitant]
     Indication: OSTEOPENIA
  16. EMTRICITABIN [Concomitant]
  17. TENOFOV [Concomitant]
  18. BYPROPION SR [Concomitant]
  19. CLONAZEPAM [Concomitant]
     Indication: ANXIETY
  20. CLONAZEPAM [Concomitant]
     Indication: POST-TRAUMATIC STRESS DISORDER
  21. ACETAMINOPHEN [Concomitant]
     Dosage: 7.5/325 MG EVERY 8 HOURS AS NEEDED
  22. TRUVADA [Concomitant]
  23. TRUVADA [Concomitant]
     Dosage: DAILY
     Dates: start: 20081230
  24. ZOLOFT [Concomitant]
     Indication: POST-TRAUMATIC STRESS DISORDER
  25. ZOLOFT [Concomitant]
     Indication: BIPOLAR DISORDER
  26. ZOLOFT [Concomitant]
     Indication: DEPRESSION
  27. SEROQUEL [Concomitant]
     Indication: POST-TRAUMATIC STRESS DISORDER
  28. SEROQUEL [Concomitant]
     Indication: DEPRESSION
  29. SEROQUEL [Concomitant]
     Indication: BIPOLAR DISORDER
  30. SEROQUEL [Concomitant]
     Indication: POST-TRAUMATIC STRESS DISORDER
     Dosage: DAILY
     Dates: start: 20081230
  31. SEROQUEL [Concomitant]
     Indication: DEPRESSION
     Dosage: DAILY
     Dates: start: 20081230
  32. SEROQUEL [Concomitant]
     Indication: BIPOLAR DISORDER
     Dosage: DAILY
     Dates: start: 20081230
  33. ZYRTEC [Concomitant]
     Dates: start: 20070620
  34. CHANTIX [Concomitant]
     Dates: start: 20070620
  35. CHANTIX [Concomitant]
     Dates: start: 20081230
  36. ALLEGRA D [Concomitant]
     Dosage: DAILY
     Dates: start: 20081230
  37. ALLEGRA D [Concomitant]
     Dosage: QD
     Dates: start: 20090306
  38. NORVIR [Concomitant]
     Dosage: QD
     Dates: start: 20090306
  39. KALETRA [Concomitant]
     Dosage: DAILY
     Dates: start: 20081230
  40. INVIRASE [Concomitant]
     Dosage: FOUR TIMES DAILY
     Dates: start: 20081230
  41. PEPTO BISMOL [Concomitant]
     Dosage: AS NEEDED
     Dates: start: 1996
  42. MYLANTA [Concomitant]
     Dosage: AS NEEDED
     Dates: start: 1996
  43. SUSTIVA [Concomitant]
  44. TRAZADONE [Concomitant]
     Indication: PAIN
  45. KETAMINE HCL [Concomitant]
     Dosage: 200 MG/2
     Dates: start: 20090719
  46. PHENERGAN [Concomitant]
     Indication: NAUSEA
     Route: 048
  47. NORCO [Concomitant]
     Indication: PAIN
     Dosage: 5 MG, 1-2 TABLETS, EVERY FOUR TO SIX.
     Route: 048
  48. LEVOFLOXACIN [Concomitant]
     Route: 048

REACTIONS (18)
  - Acquired immunodeficiency syndrome [Unknown]
  - Wrist fracture [Unknown]
  - Lung neoplasm malignant [Unknown]
  - Hepatitis C [Unknown]
  - HIV infection [Unknown]
  - Post-traumatic stress disorder [Unknown]
  - Osteoporosis [Unknown]
  - Bipolar disorder [Unknown]
  - Chronic obstructive pulmonary disease [Unknown]
  - Emotional distress [Unknown]
  - Fall [Unknown]
  - Ulna fracture [Unknown]
  - Fracture [Unknown]
  - Liver disorder [Unknown]
  - Osteopenia [Unknown]
  - Ankle fracture [Unknown]
  - Radius fracture [Unknown]
  - Depression [Unknown]
